FAERS Safety Report 21916957 (Version 1)
Quarter: 2023Q1

REPORT INFORMATION
  Report Type: Report from Study
  Country: US (occurrence: US)
  Receive Date: 20230126
  Receipt Date: 20230126
  Transmission Date: 20230418
  Serious: Yes (Hospitalization)
  Sender: FDA-Public Use
  Company Number: US-JNJFOC-20221156009

PATIENT
  Age: 74 Year
  Sex: Female
  Weight: 68.5 kg

DRUGS (30)
  1. TECLISTAMAB [Suspect]
     Active Substance: TECLISTAMAB
     Indication: Plasma cell myeloma refractory
     Dosage: 1500 MCG/KG
     Route: 058
     Dates: start: 20221006, end: 20221110
  2. TECLISTAMAB [Suspect]
     Active Substance: TECLISTAMAB
     Route: 058
     Dates: start: 20221208
  3. ZOVIRAX [Concomitant]
     Active Substance: ACYCLOVIR
  4. TYLENOL EXTRA STRENGTH [Concomitant]
     Active Substance: ACETAMINOPHEN
     Route: 048
  5. PROAIR HFA [Concomitant]
     Active Substance: ALBUTEROL SULFATE
     Indication: Wheezing
     Route: 055
  6. BAYER ASPIRIN [Concomitant]
     Active Substance: ASPIRIN
     Route: 048
  7. LIPITOR [Concomitant]
     Active Substance: ATORVASTATIN CALCIUM
  8. CALCIUM CARBONATE\CHOLECALCIFEROL [Concomitant]
     Active Substance: CALCIUM CARBONATE\CHOLECALCIFEROL
     Route: 048
  9. TUMS [Concomitant]
     Active Substance: CALCIUM CARBONATE
     Route: 048
  10. REFRESH PLUS [Concomitant]
     Active Substance: CARBOXYMETHYLCELLULOSE SODIUM
     Route: 061
  11. COREG [Concomitant]
     Active Substance: CARVEDILOL
     Route: 048
  12. PERIDEX [CHLORHEXIDINE GLUCONATE] [Concomitant]
     Route: 061
  13. VITAMIN D3 [Concomitant]
     Active Substance: CHOLECALCIFEROL
     Route: 048
  14. UBIQUINOL [Concomitant]
     Active Substance: UBIQUINOL
     Route: 048
  15. CRANBERRY [Concomitant]
     Active Substance: CRANBERRY
     Route: 048
  16. CYANOCOBALAMIN [Concomitant]
     Active Substance: CYANOCOBALAMIN
     Route: 048
  17. CYMBALTA [Concomitant]
     Active Substance: DULOXETINE HYDROCHLORIDE
     Route: 048
  18. ZETIA [Concomitant]
     Active Substance: EZETIMIBE
     Route: 048
  19. FLONASE [Concomitant]
     Active Substance: FLUTICASONE PROPIONATE
     Route: 045
  20. LASIX [Concomitant]
     Active Substance: FUROSEMIDE
     Route: 048
  21. KEPPRA [Concomitant]
     Active Substance: LEVETIRACETAM
     Route: 048
  22. ASPERCREME WITH LIDOCAINE [Concomitant]
     Active Substance: LIDOCAINE
     Route: 061
  23. LOPERAMIDE [Concomitant]
     Active Substance: LOPERAMIDE
     Indication: Diarrhoea
     Route: 048
  24. CLARITIN [Concomitant]
     Active Substance: LORATADINE
     Route: 048
  25. MELATONIN [Concomitant]
     Active Substance: MELATONIN
     Route: 048
  26. METROCREAM [Concomitant]
     Active Substance: METRONIDAZOLE
     Route: 061
  27. MINERALS\VITAMINS [Concomitant]
     Active Substance: MINERALS\VITAMINS
     Route: 048
  28. PROTONIX [Concomitant]
     Active Substance: PANTOPRAZOLE SODIUM
     Route: 048
  29. ALDACTONE [Concomitant]
     Active Substance: SPIRONOLACTONE
     Route: 048
  30. RESTORIL [Concomitant]
     Active Substance: TEMAZEPAM
     Route: 048

REACTIONS (1)
  - Hypotension [Recovered/Resolved]

NARRATIVE: CASE EVENT DATE: 20221122
